FAERS Safety Report 19500992 (Version 1)
Quarter: 2021Q3

REPORT INFORMATION
  Report Type: Spontaneous
  Country: US (occurrence: US)
  Receive Date: 20210706
  Receipt Date: 20210706
  Transmission Date: 20211014
  Serious: No
  Sender: FDA-Public Use
  Company Number: None

PATIENT
  Age: 61 Year
  Sex: Female
  Weight: 76.5 kg

DRUGS (15)
  1. COLLAGEN [Concomitant]
     Active Substance: COLLAGEN
  2. LYSINE [Concomitant]
     Active Substance: LYSINE
  3. HERBAL TEAS W/I?THEANINE AND ASHWAGANDA [Concomitant]
  4. IP6 [Concomitant]
  5. ROSUVASTATIN 5MG TABLETS [Suspect]
     Active Substance: ROSUVASTATIN
     Indication: BLOOD CHOLESTEROL ABNORMAL
     Dosage: ?          QUANTITY:1 TABLET(S);?
     Route: 048
     Dates: start: 20210522, end: 20210606
  6. OMEGA 3?6?9 AND KRILL [Concomitant]
  7. LYCOPENE [Concomitant]
     Active Substance: LYCOPENE
  8. PHOSPHATYLSERINE [Concomitant]
  9. VITAMIN D3 [Concomitant]
     Active Substance: CHOLECALCIFEROL
  10. WOMANS DAILYMULTI [Concomitant]
  11. VIT ESTER C [Concomitant]
  12. ELDERBERRY [Concomitant]
     Active Substance: HERBALS
  13. CAL?MAG BLEND [Concomitant]
  14. VITAMIN B COMPLEX [Concomitant]
     Active Substance: CYANOCOBALAMIN\DEXPANTHENOL\NIACINAMIDE\PYRIDOXINE HYDROCHLORIDE\RIBOFLAVIN 5^-PHOSPHATE SODIUM\THIAMINE HYDROCHLORIDE\VITAMIN B COMPLEX
  15. BIOTIN [Concomitant]
     Active Substance: BIOTIN

REACTIONS (20)
  - Insomnia [None]
  - Paraesthesia [None]
  - Loss of personal independence in daily activities [None]
  - Oropharyngeal pain [None]
  - Speech disorder [None]
  - Depression [None]
  - Impaired work ability [None]
  - Dyspepsia [None]
  - Arthralgia [None]
  - Confusional state [None]
  - Disorientation [None]
  - Anxiety [None]
  - Fatigue [None]
  - Hangover [None]
  - Pyrexia [None]
  - Feeling abnormal [None]
  - Dysphonia [None]
  - Hyperhidrosis [None]
  - Pruritus [None]
  - Headache [None]

NARRATIVE: CASE EVENT DATE: 20210526
